FAERS Safety Report 7449674-1 (Version None)
Quarter: 2011Q2

REPORT INFORMATION
  Report Type: 
  Country: None (occurrence: None)
  Receive Date: 20110421
  Receipt Date: 20110411
  Transmission Date: 20111010
  Serious: Yes (Life-Threatening, Hospitalization)
  Sender: FDA-Public Use
  Company Number: LTI2011A00086

PATIENT
  Age: 80 Year
  Sex: Male

DRUGS (4)
  1. ACTOS [Suspect]
     Indication: TYPE 2 DIABETES MELLITUS
     Dosage: 30 MG (30 MG,1 IN 1 D)
     Route: 048
     Dates: start: 20050101, end: 20100101
  2. AMARYL [Concomitant]
  3. STAGID (METFORMIN EMBONATE) [Concomitant]
  4. DILTIAZEM HYDROCHLORIDE [Concomitant]

REACTIONS (4)
  - HAEMATURIA [None]
  - LYMPHADENOPATHY [None]
  - BLADDER CANCER [None]
  - GENERAL PHYSICAL CONDITION ABNORMAL [None]
